FAERS Safety Report 9772805 (Version 3)
Quarter: 2013Q4

REPORT INFORMATION
  Report Type: Spontaneous
  Country: GB (occurrence: GB)
  Receive Date: 20131219
  Receipt Date: 20131220
  Transmission Date: 20140711
  Serious: Yes (Hospitalization)
  Sender: FDA-Public Use
  Company Number: GB-TEVA-450885ISR

PATIENT
  Age: 64 Year
  Sex: Female
  Weight: 50.3 kg

DRUGS (12)
  1. RAMIPRIL [Suspect]
     Indication: HYPERTENSION
     Dosage: 2.5 MILLIGRAM DAILY;
     Route: 048
     Dates: end: 20130622
  2. CISPLATIN [Suspect]
     Indication: GASTROOESOPHAGEAL CANCER
     Dosage: 2000 MG/M2 DAILY; 132MG 3/52
     Route: 042
     Dates: start: 20130325
  3. CAPECITABINE [Suspect]
     Indication: GASTROOESOPHAGEAL CANCER
     Dosage: 3300 MILLIGRAM DAILY;
     Route: 048
     Dates: start: 20130325, end: 20130619
  4. CAPECITABINE [Suspect]
     Indication: GASTROOESOPHAGEAL CANCER
     Dosage: 3000 MILLIGRAM DAILY;
     Route: 048
     Dates: start: 20130621
  5. PLACEBO (AZD4547) [Suspect]
     Indication: GASTROOESOPHAGEAL CANCER
     Dosage: BID FOR 21 DAYS
     Route: 048
     Dates: start: 20130325, end: 20130620
  6. PLACEBO (AZD4547) [Suspect]
     Indication: GASTROOESOPHAGEAL CANCER
     Route: 048
     Dates: start: 20130624
  7. DALTEPARIN [Concomitant]
     Indication: ANTICOAGULANT THERAPY
     Dosage: DOSE:5000 UNIT(S)
     Route: 058
     Dates: start: 20130620, end: 20130623
  8. METOCLOPRAMIDE [Concomitant]
     Indication: ANTIEMETIC SUPPORTIVE CARE
     Dosage: 30 MILLIGRAM DAILY;
     Route: 048
     Dates: start: 20130325
  9. SIMVASTATIN [Concomitant]
     Indication: BLOOD CHOLESTEROL INCREASED
     Dosage: 40 MILLIGRAM DAILY;
     Route: 048
     Dates: start: 20130301
  10. DEXAMETHASONE [Concomitant]
     Indication: ANTIEMETIC SUPPORTIVE CARE
     Dosage: 2 MILLIGRAM DAILY;
     Route: 048
     Dates: start: 20130325, end: 20130622
  11. CREON [Concomitant]
     Indication: PANCREATIC INSUFFICIENCY
     Dosage: WITH MEALS, DOSE:15000 UNIT(S)
     Route: 048
  12. PARACETAMOL [Concomitant]
     Indication: ANALGESIC THERAPY
     Route: 048

REACTIONS (5)
  - Hypotension [Recovered/Resolved]
  - Vomiting [Recovered/Resolved]
  - Nausea [Recovered/Resolved]
  - Abdominal pain upper [Recovered/Resolved]
  - Dyspepsia [Recovered/Resolved]
